FAERS Safety Report 9621069 (Version 1)
Quarter: 2013Q4

REPORT INFORMATION
  Report Type: Spontaneous
  Country: US (occurrence: US)
  Receive Date: 20131015
  Receipt Date: 20131015
  Transmission Date: 20140711
  Serious: Yes (Other)
  Sender: FDA-Public Use
  Company Number: US-ASTELLAS-2013US010520

PATIENT
  Age: 29 Year
  Sex: Female

DRUGS (3)
  1. AMBISOME [Suspect]
     Indication: ENDOCARDITIS
     Dosage: UNK
     Route: 042
     Dates: start: 20130925
  2. VANCOMYCIN [Concomitant]
     Indication: ENDOCARDITIS
     Route: 042
  3. CEFEPIME [Concomitant]
     Indication: ENDOCARDITIS
     Route: 042

REACTIONS (4)
  - Off label use [Unknown]
  - Eosinophilia [Unknown]
  - Injection site rash [Unknown]
  - Pyrexia [Unknown]
